FAERS Safety Report 24161335 (Version 2)
Quarter: 2024Q3

REPORT INFORMATION
  Report Type: Spontaneous
  Country: TW (occurrence: TW)
  Receive Date: 20240801
  Receipt Date: 20240816
  Transmission Date: 20241017
  Serious: Yes (Death)
  Sender: ROCHE
  Company Number: TW-CHUGAI-2024025676

PATIENT
  Age: 83 Year
  Sex: Female

DRUGS (1)
  1. ENSPRYNG [Suspect]
     Active Substance: SATRALIZUMAB-MWGE
     Indication: Neuromyelitis optica spectrum disorder
     Dosage: UNK
     Route: 050
     Dates: start: 20240528, end: 20240625

REACTIONS (1)
  - Cardiac arrest [Fatal]

NARRATIVE: CASE EVENT DATE: 20240723
